FAERS Safety Report 9340421 (Version 1)
Quarter: 2013Q2

REPORT INFORMATION
  Report Type: Other
  Country: GB (occurrence: GB)
  Receive Date: 20130610
  Receipt Date: 20130610
  Transmission Date: 20140414
  Serious: Yes (Other)
  Sender: FDA-Public Use
  Company Number: GB-PERRIGO-13GB005815

PATIENT
  Sex: Female

DRUGS (3)
  1. RANITIDINE HYDROCHLORIDE 16028/0122 83.75 MG [Suspect]
     Indication: PRODUCT USED FOR UNKNOWN INDICATION
     Dosage: UNK
     Route: 065
  2. METRONIDAZOLE [Suspect]
     Indication: DIVERTICULITIS
     Dosage: 400 MG, BID
     Route: 048
  3. OMEPRAZOLE [Suspect]
     Indication: PRODUCT USED FOR UNKNOWN INDICATION
     Dosage: UNK
     Route: 065

REACTIONS (2)
  - Pruritus [Recovered/Resolved]
  - Rash [Recovering/Resolving]
